FAERS Safety Report 9026480 (Version 1)
Quarter: 2012Q4

REPORT INFORMATION
  Report Type: Spontaneous
  Country: DK (occurrence: None)
  Receive Date: 20121211
  Receipt Date: 20121211
  Transmission Date: 20130627
  Serious: Yes (Other)
  Sender: FDA-Public Use
  Company Number: 2012MA013888

PATIENT
  Age: 67 Year
  Sex: Female

DRUGS (1)
  1. DIAZEPAM TABLETS USP, 5 MG (PUREPAC) (DIAZEPAM) [Suspect]
     Indication: EPILEPTIC SEIZURE

REACTIONS (4)
  - Memory impairment [None]
  - Respiratory arrest [None]
  - Status epilepticus [None]
  - Cognitive disorder [None]
